FAERS Safety Report 23919776 (Version 1)
Quarter: 2024Q2

REPORT INFORMATION
  Report Type: Spontaneous
  Country: CN (occurrence: CN)
  Receive Date: 20240530
  Receipt Date: 20240530
  Transmission Date: 20240716
  Serious: Yes (Hospitalization)
  Sender: FDA-Public Use
  Company Number: CN-JNJFOC-20240575096

PATIENT
  Age: 4 Year
  Sex: Male
  Weight: 18 kg

DRUGS (6)
  1. CHILDRENS MOTRIN [Suspect]
     Active Substance: IBUPROFEN
     Indication: Upper respiratory tract infection
     Route: 048
     Dates: start: 20240509, end: 20240509
  2. CHILDRENS MOTRIN [Suspect]
     Active Substance: IBUPROFEN
     Indication: Pyrexia
  3. ACETAMINOPHEN\BOS TAURUS GALLSTONE\CHLORPHENIRAMINE MALEATE [Suspect]
     Active Substance: ACETAMINOPHEN\BOS TAURUS GALLSTONE\CHLORPHENIRAMINE MALEATE
     Indication: Upper respiratory tract infection
     Dosage: 1 SACHET
     Route: 048
     Dates: start: 20240509, end: 20240509
  4. HERBALS [Suspect]
     Active Substance: HERBALS
     Indication: Upper respiratory tract infection
     Route: 048
     Dates: start: 20240509, end: 20240509
  5. HERBALS [Suspect]
     Active Substance: HERBALS
     Indication: Upper respiratory tract infection
     Route: 048
     Dates: start: 20240509, end: 20240509
  6. HERBALS [Suspect]
     Active Substance: HERBALS
     Indication: Symptomatic treatment

REACTIONS (7)
  - Rash maculo-papular [Recovering/Resolving]
  - Skin ulcer [Recovering/Resolving]
  - Scratch [Recovering/Resolving]
  - Papule [Recovering/Resolving]
  - Inappropriate schedule of product administration [Recovering/Resolving]
  - Erythema [Recovering/Resolving]
  - Pruritus [Recovering/Resolving]

NARRATIVE: CASE EVENT DATE: 20240510
